FAERS Safety Report 5630489-1 (Version None)
Quarter: 2008Q1

REPORT INFORMATION
  Report Type: 
  Country: None (occurrence: None)
  Receive Date: 20080219
  Receipt Date: 20080206
  Transmission Date: 20080703
  Serious: Yes (Hospitalization)
  Sender: FDA-Public Use
  Company Number: GB-AMGEN-UK264346

PATIENT
  Sex: Female

DRUGS (6)
  1. NEULASTA [Suspect]
     Indication: CHEMOTHERAPY
     Route: 058
     Dates: start: 20080126
  2. ETOPOSIDE [Concomitant]
     Route: 042
     Dates: start: 20080101
  3. IFOSFAMIDE [Concomitant]
     Route: 042
     Dates: start: 20080101
  4. CYTARABINE [Concomitant]
     Route: 042
     Dates: start: 20080101
  5. METHOTREXATE [Concomitant]
     Route: 065
     Dates: start: 20080101
  6. CALCIUM FOLINATE [Concomitant]
     Route: 065

REACTIONS (2)
  - DRUG INEFFECTIVE [None]
  - NEUTROPENIA [None]
